FAERS Safety Report 5777932-5 (Version None)
Quarter: 2008Q2

REPORT INFORMATION
  Report Type: 
  Country: None (occurrence: None)
  Receive Date: 20080617
  Receipt Date: 20080617
  Transmission Date: 20081010
  Serious: Yes (Hospitalization)
  Sender: FDA-Public Use
  Company Number: None

PATIENT
  Sex: Female
  Weight: 66 kg

DRUGS (2)
  1. CYCLOPHOSPHAMIDE [Suspect]
     Dosage: 980 MG
  2. DOXORUBICIN HYDROCHLORIDE [Suspect]
     Dosage: 98 MG

REACTIONS (7)
  - BACTERIAL INFECTION [None]
  - DEEP VEIN THROMBOSIS [None]
  - DEHYDRATION [None]
  - NAUSEA [None]
  - NEUTROPENIA [None]
  - PYREXIA [None]
  - VOMITING [None]
